FAERS Safety Report 9295656 (Version 1)
Quarter: 2013Q2

REPORT INFORMATION
  Report Type: Spontaneous
  Country: US (occurrence: US)
  Receive Date: 20130517
  Receipt Date: 20130517
  Transmission Date: 20140414
  Serious: Yes (Death, Other)
  Sender: FDA-Public Use
  Company Number: US-SHIRE-ALL1-2013-03174

PATIENT
  Age: 7 Year
  Sex: Male

DRUGS (3)
  1. VYVANSE [Suspect]
     Indication: PRODUCT USED FOR UNKNOWN INDICATION
     Dosage: 50 MG, 1X/DAY:QD
     Route: 048
     Dates: start: 2009
  2. VYVANSE [Suspect]
     Dosage: 30 MG, 1X/DAY:QD
     Route: 048
  3. SYMBYAX [Concomitant]
     Indication: DEPRESSION
     Dosage: 325 MG, UNKNOWN
     Route: 048

REACTIONS (1)
  - Completed suicide [Fatal]
